FAERS Safety Report 6010829-4 (Version None)
Quarter: 2008Q4

REPORT INFORMATION
  Report Type: 
  Country: None (occurrence: None)
  Receive Date: 20081218
  Receipt Date: 20081211
  Transmission Date: 20090506
  Serious: Yes (Other)
  Sender: FDA-Public Use
  Company Number: PHHY2008DE25402

PATIENT
  Sex: Male
  Weight: 76 kg

DRUGS (6)
  1. RASILEZ [Suspect]
     Indication: HYPERTENSION
     Dosage: 150 MG/D
     Route: 048
     Dates: start: 20080802, end: 20080926
  2. RASILEZ [Suspect]
     Dosage: 150 MG/D
     Route: 048
     Dates: start: 20081016
  3. RASILEZ [Suspect]
     Dosage: 300 MG/D
     Route: 048
     Dates: start: 20081001
  4. PROVAS COMP [Suspect]
     Dosage: 80MG/12.5 MG QD
  5. AMLODIPINE [Concomitant]
  6. NORVASC [Concomitant]
     Dosage: 1 DF, BID

REACTIONS (3)
  - BLOOD PRESSURE FLUCTUATION [None]
  - BONE MARROW DISORDER [None]
  - LEUKOPENIA [None]
